FAERS Safety Report 11789781 (Version 1)
Quarter: 2015Q4

REPORT INFORMATION
  Report Type: Spontaneous
  Country: US (occurrence: None)
  Receive Date: 20151130
  Receipt Date: 20151130
  Transmission Date: 20160305
  Serious: Yes (Other)
  Sender: FDA-Public Use
  Company Number: None

PATIENT
  Age: 60 Year
  Sex: Male

DRUGS (1)
  1. EPIPEN [Suspect]
     Active Substance: EPINEPHRINE
     Indication: INJECTION

REACTIONS (4)
  - Injection site discolouration [None]
  - Injection site pain [None]
  - Injury associated with device [None]
  - Accidental exposure to product [None]

NARRATIVE: CASE EVENT DATE: 20151117
